FAERS Safety Report 8505034-3 (Version None)
Quarter: 2012Q3

REPORT INFORMATION
  Report Type: 
  Country: None (occurrence: None)
  Receive Date: 20120712
  Receipt Date: 20120703
  Transmission Date: 20120928
  Serious: Yes (Hospitalization, Other)
  Sender: FDA-Public Use
  Company Number: JP-VERTEX PHARMACEUTICALS INC.-AE-2012-006653

PATIENT
  Age: 66 Year
  Sex: Male

DRUGS (12)
  1. PEG-INTRON [Concomitant]
     Indication: HEPATITIS C
     Route: 058
     Dates: start: 20120315, end: 20120315
  2. RIBAVIRIN [Concomitant]
     Route: 048
     Dates: start: 20120324, end: 20120325
  3. TELAVIC (TELAPREVIR) [Suspect]
     Route: 048
     Dates: start: 20120324, end: 20120516
  4. URSO 250 [Concomitant]
     Route: 048
     Dates: start: 20110308, end: 20120314
  5. PEG-INTRON [Concomitant]
     Route: 058
     Dates: start: 20120510
  6. RIBAVIRIN [Concomitant]
     Route: 048
     Dates: start: 20120326
  7. TELAVIC (TELAPREVIR) [Suspect]
     Indication: HEPATITIS C
     Route: 048
     Dates: start: 20120315
  8. PEG-INTRON [Concomitant]
     Route: 058
     Dates: start: 20120322, end: 20120418
  9. PEG-INTRON [Concomitant]
     Route: 058
     Dates: start: 20120419, end: 20120501
  10. PEG-INTRON [Concomitant]
     Route: 058
     Dates: start: 20120502, end: 20120509
  11. RIBAVIRIN [Concomitant]
     Indication: HEPATITIS C
     Route: 048
     Dates: start: 20120315, end: 20120323
  12. ACETAMINOPHEN [Concomitant]
     Route: 048
     Dates: start: 20120315

REACTIONS (2)
  - NEUTROPHIL COUNT DECREASED [None]
  - TOXIC SKIN ERUPTION [None]
